FAERS Safety Report 13814155 (Version 1)
Quarter: 2017Q3

REPORT INFORMATION
  Report Type: Spontaneous
  Country: US (occurrence: US)
  Receive Date: 20170730
  Receipt Date: 20170730
  Transmission Date: 20171127
  Serious: Yes (Disabling)
  Sender: FDA-Public Use
  Company Number: None

PATIENT
  Age: 29 Year
  Sex: Female
  Weight: 47.7 kg

DRUGS (9)
  1. DUPIXENT [Suspect]
     Active Substance: DUPILUMAB
     Indication: ECZEMA
     Dosage: ?          OTHER FREQUENCY:ONCE EVERY TWO WKS;?
     Route: 030
     Dates: start: 20170725
  2. CLARITIN [Concomitant]
     Active Substance: LORATADINE
  3. ZYRTEC [Concomitant]
     Active Substance: CETIRIZINE HYDROCHLORIDE
  4. PROTOPIC [Concomitant]
     Active Substance: TACROLIMUS
  5. DULERA [Concomitant]
     Active Substance: FORMOTEROL FUMARATE DIHYDRATE\MOMETASONE FUROATE
  6. NEXPLANON [Concomitant]
     Active Substance: ETONOGESTREL
  7. TRIAMCYNILONE [Concomitant]
  8. ALBUTEROL. [Concomitant]
     Active Substance: ALBUTEROL
  9. CLOBETASOL PROPIONATE. [Concomitant]
     Active Substance: CLOBETASOL PROPIONATE

REACTIONS (10)
  - Dry mouth [None]
  - Vertigo [None]
  - Asthenia [None]
  - Disturbance in attention [None]
  - Photosensitivity reaction [None]
  - Nausea [None]
  - Conjunctivitis [None]
  - Diplopia [None]
  - Metamorphopsia [None]
  - Eye pain [None]

NARRATIVE: CASE EVENT DATE: 20170730
